FAERS Safety Report 22089558 (Version 1)
Quarter: 2023Q1

REPORT INFORMATION
  Report Type: Spontaneous
  Country: GB (occurrence: GB)
  Receive Date: 20230313
  Receipt Date: 20230313
  Transmission Date: 20230418
  Serious: Yes (Other)
  Sender: FDA-Public Use
  Company Number: GB-MHRA-MED-202303011137294770-PJVFL

PATIENT
  Sex: Female
  Weight: 106 kg

DRUGS (1)
  1. CIPROFLOXACIN [Suspect]
     Active Substance: CIPROFLOXACIN
     Indication: Product used for unknown indication
     Dates: start: 20230202, end: 20230301

REACTIONS (1)
  - Tendon injury [Recovering/Resolving]

NARRATIVE: CASE EVENT DATE: 20230208
